FAERS Safety Report 6441702-5 (Version None)
Quarter: 2009Q4

REPORT INFORMATION
  Report Type: 
  Country: None (occurrence: None)
  Receive Date: 20091116
  Receipt Date: 20091103
  Transmission Date: 20100525
  Serious: Yes (Hospitalization)
  Sender: FDA-Public Use
  Company Number: US-MERCK-92040451

PATIENT
  Age: 55 Year
  Sex: Male

DRUGS (4)
  1. PEPCID [Suspect]
     Indication: GASTRITIS
     Route: 048
     Dates: start: 19920406, end: 19920412
  2. RANITIDINE [Concomitant]
     Route: 065
     Dates: start: 19920331, end: 19920406
  3. SUCRALFATE [Concomitant]
     Route: 065
     Dates: start: 19920402, end: 19920412
  4. ACETAMINOPHEN [Concomitant]
     Route: 065
     Dates: start: 19920402, end: 19920412

REACTIONS (1)
  - JAUNDICE HEPATOCELLULAR [None]
